FAERS Safety Report 10934252 (Version 1)
Quarter: 2015Q1

REPORT INFORMATION
  Report Type: Spontaneous
  Country: GB (occurrence: GB)
  Receive Date: 20150320
  Receipt Date: 20150320
  Transmission Date: 20150721
  Serious: Yes (Other)
  Sender: FDA-Public Use
  Company Number: GB-TEVA-547933ACC

PATIENT
  Age: 72 Year
  Sex: Male
  Weight: 78 kg

DRUGS (20)
  1. HYDROXOCOBALAMIN [Concomitant]
     Active Substance: HYDROXOCOBALAMIN
     Dates: start: 20150127
  2. MACROGOL [Concomitant]
     Active Substance: POLYETHYLENE GLYCOLS
     Dosage: 2 DOSAGE FORMS DAILY;
     Dates: start: 20150127
  3. PARACETAMOL [Concomitant]
     Active Substance: ACETAMINOPHEN
     Indication: PAIN
     Dosage: FOUR TIMES DAILY
     Dates: start: 20141028
  4. GABAPENTIN. [Suspect]
     Active Substance: GABAPENTIN
  5. ARTIFICIAL SALIVA [Concomitant]
     Dosage: USE AS DIRECTED.
     Dates: start: 20150127
  6. BENZYDAMINE HYDROCHLORIDE [Concomitant]
     Active Substance: BENZYDAMINE HYDROCHLORIDE
     Dosage: 5-10 ML TO BE TAKEN THREE TIMES DAILY WHEN REQUIRED
     Dates: start: 20150127
  7. CYCLIZINE [Concomitant]
     Active Substance: CYCLIZINE
     Dosage: THREE TIMES DAILY WHEN REQUIRED.
     Dates: start: 20150127
  8. DOUBLEBASE [Concomitant]
     Active Substance: ISOPROPYL MYRISTATE\PARAFFIN
     Dosage: USE AS NEEDED.
     Dates: start: 20120208
  9. LEVOMEPROMAZINE [Concomitant]
     Active Substance: LEVOMEPROMAZINE
     Indication: NAUSEA
     Dosage: HOURLY SUBCUT AS NEEDED
     Route: 058
     Dates: start: 20150127
  10. CITALOPRAM [Concomitant]
     Active Substance: CITALOPRAM HYDROBROMIDE
     Indication: DEPRESSED MOOD
     Dosage: 1 DOSAGE FORMS DAILY;
     Dates: start: 20141219
  11. FUROSEMIDE. [Concomitant]
     Active Substance: FUROSEMIDE
     Dosage: 1 DOSAGE FORMS DAILY; EACH MORNING
     Dates: start: 20150127
  12. LANSOPRAZOLE. [Concomitant]
     Active Substance: LANSOPRAZOLE
     Dosage: 1 DOSAGE FORMS DAILY;
     Dates: start: 20141028, end: 20150127
  13. LORAZEPAM. [Concomitant]
     Active Substance: LORAZEPAM
     Dosage: 3 DOSAGE FORMS DAILY;
     Dates: start: 20150209
  14. MIDAZOLAM [Concomitant]
     Active Substance: MIDAZOLAM\MIDAZOLAM HYDROCHLORIDE
     Dosage: 2-5 TO 5MG SUBCUT HOURLY
     Route: 058
     Dates: start: 20150127
  15. MORPHINE SULFATE. [Concomitant]
     Active Substance: MORPHINE SULFATE
     Dosage: 70 MILLIGRAM DAILY; VIA CONTINUOUS SUBCUTANEOUS INFUSION
     Route: 058
     Dates: start: 20141204, end: 20150216
  16. WATER FOR INJECTIONS [Concomitant]
     Active Substance: WATER
     Dates: start: 20150126, end: 20150131
  17. OMEPRAZOLE. [Concomitant]
     Active Substance: OMEPRAZOLE
     Dosage: 2 DOSAGE FORMS DAILY;
     Dates: start: 20150127
  18. BIOXTRA [Concomitant]
     Dates: start: 20150127
  19. HYOSCINE BUTYLBROMIDE [Concomitant]
     Active Substance: BUTYLSCOPOLAMINE
     Dosage: 2 HOURLY AS NEEDED FOR RESP SECRET
     Dates: start: 20150127
  20. MST CONTINUS [Concomitant]
     Active Substance: MORPHINE SULFATE
     Dosage: 4 DOSAGE FORMS DAILY;
     Dates: start: 20150127

REACTIONS (2)
  - Dizziness [Recovered/Resolved]
  - Hallucination [Recovered/Resolved]

NARRATIVE: CASE EVENT DATE: 20150303
